FAERS Safety Report 10157946 (Version 1)
Quarter: 2014Q2

REPORT INFORMATION
  Report Type: Spontaneous
  Country: US (occurrence: US)
  Receive Date: 20140507
  Receipt Date: 20140507
  Transmission Date: 20141212
  Serious: Yes (Hospitalization)
  Sender: FDA-Public Use
  Company Number: US-GLAXOSMITHKLINE-A1071196A

PATIENT
  Age: 52 Year
  Sex: Male

DRUGS (7)
  1. ADVAIR HFA [Suspect]
     Indication: BRONCHITIS CHRONIC
     Dosage: 2PUFF THREE TIMES PER DAY
     Route: 055
     Dates: start: 201304
  2. VENTOLIN [Suspect]
     Indication: BRONCHITIS
     Dosage: 2PUFF THREE TIMES PER DAY
     Route: 055
     Dates: start: 201304
  3. CLINORIL [Concomitant]
  4. METOPROLOL [Concomitant]
  5. EFFIENT [Concomitant]
  6. CRESTOR [Concomitant]
  7. BABY ASPIRIN [Concomitant]

REACTIONS (3)
  - Coronary artery occlusion [Unknown]
  - Coronary arterial stent insertion [Unknown]
  - Overdose [Unknown]
